FAERS Safety Report 20186069 (Version 1)
Quarter: 2021Q4

REPORT INFORMATION
  Report Type: Spontaneous
  Country: US (occurrence: None)
  Receive Date: 20211215
  Receipt Date: 20211215
  Transmission Date: 20220303
  Serious: No
  Sender: FDA-Public Use
  Company Number: US-Orion Corporation ORION PHARMA-ENTC2021-0124

PATIENT
  Sex: Male

DRUGS (1)
  1. CARBIDOPA\ENTACAPONE\LEVODOPA [Suspect]
     Active Substance: CARBIDOPA\ENTACAPONE\LEVODOPA
     Indication: Parkinson^s disease
     Dosage: STRENGTH: LCE: 25/100/200 MILLIGRAM
     Route: 048
     Dates: start: 20210318, end: 20210318

REACTIONS (2)
  - Illness [Recovered/Resolved]
  - Dizziness [Recovered/Resolved]

NARRATIVE: CASE EVENT DATE: 20210318
